FAERS Safety Report 7063015-3 (Version None)
Quarter: 2010Q4

REPORT INFORMATION
  Report Type: 
  Country: None (occurrence: None)
  Receive Date: 20101026
  Receipt Date: 20100329
  Transmission Date: 20110411
  Serious: No
  Sender: FDA-Public Use
  Company Number: US-PFIZER INC-2010040606

PATIENT
  Sex: Female
  Weight: 82 kg

DRUGS (9)
  1. LIPITOR [Suspect]
     Indication: BLOOD CHOLESTEROL INCREASED
     Dosage: 10 MG, DAILY
     Route: 048
  2. CELEBREX [Suspect]
     Indication: ARTHRITIS
     Dosage: 100 MG, 1X/DAY
     Route: 048
     Dates: start: 20070101
  3. COZAAR [Concomitant]
     Indication: HYPERTENSION
     Dosage: 100 MG, UNK
  4. SULAR [Concomitant]
     Indication: HYPERTENSION
     Dosage: 40 MG, UNK
  5. ATIVAN [Concomitant]
     Indication: INSOMNIA
     Dosage: 12.5 MG, UNK
  6. FISH OIL [Concomitant]
     Dosage: 400 MG, UNK
  7. CALCIUM [Concomitant]
     Dosage: UNK
  8. CENTRUM SILVER [Concomitant]
     Dosage: UNK
  9. ACETYLSALICYLIC ACID [Concomitant]
     Dosage: UNK

REACTIONS (1)
  - HEART RATE INCREASED [None]
